FAERS Safety Report 13383427 (Version 1)
Quarter: 2017Q1

REPORT INFORMATION
  Report Type: Report from Study
  Country: US (occurrence: US)
  Receive Date: 20170329
  Receipt Date: 20170329
  Transmission Date: 20170429
  Serious: Yes (Other)
  Sender: FDA-Public Use
  Company Number: US-SAOL THERAPEUTICS-2017SAO00533

PATIENT
  Sex: Female

DRUGS (6)
  1. LEVOTHYROXINE. [Concomitant]
     Active Substance: LEVOTHYROXINE
  2. TYLENOL [Concomitant]
     Active Substance: ACETAMINOPHEN
  3. BACLOFEN. [Suspect]
     Active Substance: BACLOFEN
     Dosage: 20 MG, 3X/DAY
  4. LIPITOR [Concomitant]
     Active Substance: ATORVASTATIN CALCIUM
  5. MOTRIN [Concomitant]
     Active Substance: IBUPROFEN
  6. GILENYA [Suspect]
     Active Substance: FINGOLIMOD HYDROCHLORIDE
     Dosage: 0.5 MG, 1X/DAY
     Route: 048
     Dates: start: 20161130

REACTIONS (2)
  - Sensory disturbance [Unknown]
  - Musculoskeletal stiffness [Unknown]
